FAERS Safety Report 5961155-0 (Version None)
Quarter: 2008Q4

REPORT INFORMATION
  Report Type: 
  Country: None (occurrence: None)
  Receive Date: 20081121
  Receipt Date: 20081114
  Transmission Date: 20090506
  Serious: Yes (Hospitalization)
  Sender: FDA-Public Use
  Company Number: JP-BAYER-200812768BYL

PATIENT
  Age: 78 Year
  Sex: Male
  Weight: 68 kg

DRUGS (8)
  1. NEXAVAR [Suspect]
     Indication: RENAL CELL CARCINOMA STAGE IV
     Dosage: UNIT DOSE: 200 MG
     Route: 048
     Dates: start: 20080718
  2. OLMETEC [Concomitant]
     Route: 048
     Dates: start: 20080717
  3. ADALAT [Concomitant]
     Route: 048
     Dates: start: 20080717
  4. ARGAMATE [Concomitant]
     Route: 048
     Dates: start: 20080717
  5. ACTOS [Concomitant]
     Route: 048
     Dates: start: 20080717
  6. EUGLUCON [Concomitant]
     Route: 048
     Dates: start: 20080717
  7. SEIBULE [Concomitant]
     Route: 048
     Dates: start: 20080717
  8. SIMVASTATIN [Concomitant]
     Route: 048
     Dates: start: 20080717

REACTIONS (1)
  - HYPOGLYCAEMIA [None]
